FAERS Safety Report 15837149 (Version 1)
Quarter: 2018Q4

REPORT INFORMATION
  Report Type: Spontaneous
  Country: US (occurrence: US)
  Receive Date: 20181220
  Receipt Date: 20181220
  Transmission Date: 20190205
  Serious: Yes (Hospitalization)
  Sender: FDA-Public Use
  Company Number: None

PATIENT
  Age: 55 Year
  Sex: Male

DRUGS (1)
  1. ZYTIGA [Suspect]
     Active Substance: ABIRATERONE ACETATE
     Dates: start: 201804

REACTIONS (5)
  - Pulmonary oedema [None]
  - Hypertension [None]
  - Heart rate abnormal [None]
  - Body temperature abnormal [None]
  - Oedema peripheral [None]

NARRATIVE: CASE EVENT DATE: 20181203
